FAERS Safety Report 5879027-9 (Version None)
Quarter: 2008Q3

REPORT INFORMATION
  Report Type: 
  Country: None (occurrence: None)
  Receive Date: 20080912
  Receipt Date: 20080906
  Transmission Date: 20090109
  Serious: Yes (Other)
  Sender: FDA-Public Use
  Company Number: PHHY2008IT20692

PATIENT
  Age: 70 Year
  Sex: Female

DRUGS (2)
  1. EXJADE [Suspect]
     Indication: IRON OVERLOAD
     Dosage: UNK
  2. TRANSFUSIONS [Concomitant]
     Dosage: 450 ML EVERY 30 DAYS

REACTIONS (2)
  - DEPRESSION [None]
  - SUICIDAL IDEATION [None]
